FAERS Safety Report 25852312 (Version 1)
Quarter: 2025Q3

REPORT INFORMATION
  Report Type: Spontaneous
  Country: BR (occurrence: BR)
  Receive Date: 20250926
  Receipt Date: 20250926
  Transmission Date: 20251021
  Serious: Yes (Other)
  Sender: EMD SERONO INC
  Company Number: BR-Merck Healthcare KGaA-2025047577

PATIENT
  Sex: Male

DRUGS (1)
  1. GLIFAGE [Suspect]
     Active Substance: METFORMIN HYDROCHLORIDE
     Indication: Type 2 diabetes mellitus
     Dosage: 1. MFG. DATE: APR-2025, EXP. DATE: MAY-2028. ?2. VALIDITY: APR-2028

REACTIONS (5)
  - Foreign body in throat [Recovered/Resolved]
  - Throat irritation [Unknown]
  - Cough [Unknown]
  - Product physical issue [Unknown]
  - Product residue present [Unknown]
